FAERS Safety Report 23564229 (Version 1)
Quarter: 2024Q1

REPORT INFORMATION
  Report Type: Spontaneous
  Country: US (occurrence: US)
  Receive Date: 20240226
  Receipt Date: 20240226
  Transmission Date: 20240409
  Serious: No
  Sender: FDA-Public Use
  Company Number: US-AMNEAL PHARMACEUTICALS-2023-AMRX-00619

PATIENT
  Sex: Male

DRUGS (1)
  1. EMVERM [Suspect]
     Active Substance: MEBENDAZOLE
     Indication: Enterobiasis
     Dosage: TWO TABLETS DAILY
     Route: 048
     Dates: end: 20230220

REACTIONS (1)
  - Drug ineffective [Unknown]
